FAERS Safety Report 14236728 (Version 1)
Quarter: 2017Q4

REPORT INFORMATION
  Report Type: Spontaneous
  Country: US (occurrence: US)
  Receive Date: 20171129
  Receipt Date: 20171129
  Transmission Date: 20180321
  Serious: No
  Sender: FDA-Public Use
  Company Number: US-BAYER-2017-230791

PATIENT
  Sex: Male

DRUGS (1)
  1. KYLEENA [Suspect]
     Active Substance: LEVONORGESTREL
     Dosage: UNK
     Route: 003
     Dates: start: 201711

REACTIONS (1)
  - Penile pain [None]

NARRATIVE: CASE EVENT DATE: 201711
